FAERS Safety Report 6744544-6 (Version None)
Quarter: 2010Q2

REPORT INFORMATION
  Report Type: 
  Country: None (occurrence: None)
  Receive Date: 20100527
  Receipt Date: 20100520
  Transmission Date: 20101027
  Serious: Yes (Other)
  Sender: FDA-Public Use
  Company Number: TR-ELI_LILLY_AND_COMPANY-TR201005005676

PATIENT
  Age: 22 Year
  Sex: Female

DRUGS (2)
  1. HUMULIN N [Suspect]
     Indication: GESTATIONAL DIABETES
     Dosage: 10 IU, EACH MORNING
     Route: 058
     Dates: start: 20100202, end: 20100412
  2. HUMULIN N [Suspect]
     Dosage: 6 IU, EACH EVENING
     Route: 058
     Dates: start: 20100202, end: 20100412

REACTIONS (3)
  - ABORTION [None]
  - DRUG EXPOSURE DURING PREGNANCY [None]
  - INTRA-UTERINE DEATH [None]
